FAERS Safety Report 18933291 (Version 3)
Quarter: 2021Q1

REPORT INFORMATION
  Report Type: Spontaneous
  Country: US (occurrence: US)
  Receive Date: 20210224
  Receipt Date: 20210331
  Transmission Date: 20210420
  Serious: Yes (Death)
  Sender: FDA-Public Use
  Company Number: US-PFIZER INC-2021169366

PATIENT
  Age: 13 Month
  Sex: Female

DRUGS (8)
  1. FLUCONAZOLE. [Suspect]
     Active Substance: FLUCONAZOLE
     Indication: VARICELLA
     Dosage: UNK
  2. SULFAMETHOXAZOLE/TRIMETHOPRIM [Suspect]
     Active Substance: SULFAMETHOXAZOLE\TRIMETHOPRIM
     Indication: VARICELLA
     Dosage: UNK
  3. FOSCARNET [Suspect]
     Active Substance: FOSCARNET
     Indication: VARICELLA
     Dosage: UNK
  4. CLINDAMYCIN. [Suspect]
     Active Substance: CLINDAMYCIN
     Indication: VARICELLA
     Dosage: UNK
  5. VARICELLA VACCINE [Suspect]
     Active Substance: VARICELLA-ZOSTER VIRUS STRAIN OKA/MERCK LIVE ANTIGEN
     Indication: VARICELLA ZOSTER VIRUS INFECTION
     Dosage: UNK
  6. ACICLOVIR [Suspect]
     Active Substance: ACYCLOVIR
     Indication: VARICELLA
     Dosage: UNK
  7. RIBAVIRIN. [Suspect]
     Active Substance: RIBAVIRIN
     Indication: VARICELLA
     Dosage: UNK
  8. CEFOTAXIME [Suspect]
     Active Substance: CEFOTAXIME SODIUM
     Indication: VARICELLA
     Dosage: UNK

REACTIONS (1)
  - Drug ineffective for unapproved indication [Fatal]
